FAERS Safety Report 9315880 (Version 3)
Quarter: 2013Q2

REPORT INFORMATION
  Report Type: Report from Study
  Country: EG (occurrence: EG)
  Receive Date: 20130530
  Receipt Date: 20130626
  Transmission Date: 20140414
  Serious: Yes (Hospitalization)
  Sender: FDA-Public Use
  Company Number: EG-009507513-1305EGY016158

PATIENT
  Age: 43 Year
  Sex: Female

DRUGS (13)
  1. RIBAVIRIN [Suspect]
     Indication: CHRONIC HEPATITIS C
     Dosage: 1200 MG, PER DAY
     Route: 048
     Dates: start: 20130306, end: 20130319
  2. RIBAVIRIN [Suspect]
     Dosage: 1000 MG,PER DAY
     Route: 048
     Dates: start: 20130320, end: 20130403
  3. RIBAVIRIN [Suspect]
     Dosage: 800 MG, PER DAY
     Route: 048
     Dates: start: 20130404, end: 20130423
  4. RIBAVIRIN [Suspect]
     Dosage: 1000 MG PER DAY
     Route: 048
     Dates: start: 20130424, end: 20130515
  5. RIBAVIRIN [Suspect]
     Dosage: 800 MG PER DAY
     Route: 048
     Dates: start: 20130516, end: 20130525
  6. PEGINTERFERON ALFA-2B [Suspect]
     Indication: CHRONIC HEPATITIS C
     Dosage: 120 MICROGRAM, QW
     Route: 058
     Dates: start: 20130306, end: 20130523
  7. ACETAMINOPHEN [Concomitant]
     Indication: BONE PAIN
     Dosage: UNK UNK, PRN
     Route: 048
     Dates: start: 20130320, end: 20130530
  8. DAKTARIN [Concomitant]
     Indication: SCAB
     Dosage: UNK, TID
     Route: 061
     Dates: start: 20130525, end: 20130602
  9. MYCOSTATIN [Concomitant]
     Indication: SCAB
     Dosage: UNK, TID
     Route: 061
     Dates: start: 20130525, end: 20130602
  10. FUCICORT [Concomitant]
     Indication: SCAB
     Dosage: UNK, TID
     Route: 061
     Dates: start: 20130525, end: 20130602
  11. FOLIC ACID [Concomitant]
     Indication: BONE MARROW FAILURE
     Dosage: UNK UNK, BID
     Route: 048
     Dates: start: 20130320
  12. CYANOCOBALAMIN [Concomitant]
     Indication: BONE MARROW FAILURE
     Dosage: UNK, Q3W
     Route: 048
     Dates: start: 20130320
  13. GASTROZOL [Concomitant]
     Indication: ABDOMINAL PAIN UPPER
     Dosage: 20 MG, PRN
     Route: 048
     Dates: start: 20130320, end: 20130530

REACTIONS (2)
  - Leukopenia [Recovered/Resolved]
  - Anaemia [Recovered/Resolved]
